FAERS Safety Report 11259056 (Version 1)
Quarter: 2015Q3

REPORT INFORMATION
  Report Type: Spontaneous
  Country: MX (occurrence: MX)
  Receive Date: 20150710
  Receipt Date: 20150710
  Transmission Date: 20151125
  Serious: Yes (Death, Other)
  Sender: FDA-Public Use
  Company Number: MX-SUN PHARMACEUTICAL INDUSTRIES LTD-2015R1-099993

PATIENT
  Sex: Male

DRUGS (1)
  1. AMITRIPTYLINE [Suspect]
     Active Substance: AMITRIPTYLINE
     Indication: PRODUCT USED FOR UNKNOWN INDICATION
     Dosage: UNK
     Route: 065

REACTIONS (9)
  - Hydrops foetalis [Unknown]
  - Cardiac fibrillation [Fatal]
  - Atrioventricular block [Unknown]
  - Electrocardiogram QT prolonged [Unknown]
  - Sepsis [Fatal]
  - Foetal exposure during pregnancy [Unknown]
  - Gene mutation [Unknown]
  - Multiple congenital abnormalities [Unknown]
  - Ventricular tachycardia [Fatal]
